FAERS Safety Report 6015133-6 (Version None)
Quarter: 2008Q4

REPORT INFORMATION
  Report Type: 
  Country: None (occurrence: None)
  Receive Date: 20081219
  Receipt Date: 20081219
  Transmission Date: 20090506
  Serious: Yes (Other)
  Sender: FDA-Public Use
  Company Number: None

PATIENT
  Sex: Female

DRUGS (2)
  1. ACCUPRIL [Suspect]
     Indication: DIZZINESS
     Dosage: 5MG 1 DAY
     Dates: start: 20081106, end: 20081215
  2. ACCUPRIL [Suspect]
     Indication: PALPITATIONS
     Dosage: 5MG 1 DAY
     Dates: start: 20081106, end: 20081215

REACTIONS (4)
  - BLOOD PRESSURE INADEQUATELY CONTROLLED [None]
  - CHEST DISCOMFORT [None]
  - DIZZINESS [None]
  - PALPITATIONS [None]
